FAERS Safety Report 9370238 (Version 1)
Quarter: 2013Q2

REPORT INFORMATION
  Report Type: Spontaneous
  Country: SE (occurrence: SE)
  Receive Date: 20130626
  Receipt Date: 20130626
  Transmission Date: 20140414
  Serious: Yes (Life-Threatening, Hospitalization)
  Sender: FDA-Public Use
  Company Number: SE-TEVA-413525ISR

PATIENT
  Age: 40 Year
  Sex: Male

DRUGS (1)
  1. SOTALOL [Suspect]
     Indication: OVERDOSE
     Dosage: DF = 80MG TABLET
     Route: 048

REACTIONS (6)
  - Electrocardiogram QT prolonged [Recovering/Resolving]
  - Torsade de pointes [Recovering/Resolving]
  - Overdose [Recovering/Resolving]
  - Cardiac arrest [Recovered/Resolved]
  - Poisoning [Recovering/Resolving]
  - Ventricular fibrillation [Unknown]
